FAERS Safety Report 8630315 (Version 3)
Quarter: 2013Q1

REPORT INFORMATION
  Report Type: Spontaneous
  Country: JP (occurrence: JP)
  Receive Date: 20120622
  Receipt Date: 20130208
  Transmission Date: 20140127
  Serious: Yes (Other)
  Sender: FDA-Public Use
  Company Number: JP-BAYER-2012-059633

PATIENT
  Age: 84 Year
  Sex: Female

DRUGS (4)
  1. NEXAVAR [Suspect]
     Indication: HEPATOCELLULAR CARCINOMA
     Dosage: 400 MG, QD ON DAY 1- 28
     Route: 048
     Dates: start: 20110525
  2. NEXAVAR [Suspect]
     Indication: HEPATOCELLULAR CARCINOMA
     Dosage: 200 MG, QD
     Route: 048
     Dates: end: 201202
  3. CISPLATIN [Concomitant]
     Indication: HEPATOCELLULAR CARCINOMA
     Dosage: 30 MG/M2, QD ON DAY 1, 8 AND 15
     Route: 025
  4. CISPLATIN [Concomitant]
     Indication: TUMOUR THROMBOSIS

REACTIONS (4)
  - Ascites [Recovered/Resolved]
  - Pleural effusion [Recovered/Resolved]
  - Platelet count decreased [Recovered/Resolved]
  - Hypertension [Recovered/Resolved]
